FAERS Safety Report 23645584 (Version 1)
Quarter: 2024Q1

REPORT INFORMATION
  Report Type: Spontaneous
  Country: US (occurrence: US)
  Receive Date: 20240319
  Receipt Date: 20240319
  Transmission Date: 20240410
  Serious: Yes (Hospitalization, Other)
  Sender: FDA-Public Use
  Company Number: US-JAZZ PHARMACEUTICALS-2024-US-004635

PATIENT
  Age: 50 Year
  Sex: Female

DRUGS (1)
  1. XYWAV [Suspect]
     Active Substance: CALCIUM OXYBATE\MAGNESIUM OXYBATE\POTASSIUM OXYBATE\SODIUM OXYBATE
     Indication: Product used for unknown indication

REACTIONS (7)
  - Agitation [Recovered/Resolved]
  - Bradycardia [Recovered/Resolved]
  - Depressed level of consciousness [Recovered/Resolved]
  - Confusional state [Recovered/Resolved]
  - Hallucination [Recovered/Resolved]
  - Delusion [Recovered/Resolved]
  - Vomiting [Recovered/Resolved]
